FAERS Safety Report 5752060-3 (Version None)
Quarter: 2008Q2

REPORT INFORMATION
  Report Type: 
  Country: None (occurrence: None)
  Receive Date: 20080529
  Receipt Date: 20080514
  Transmission Date: 20081010
  Serious: Yes (Hospitalization)
  Sender: FDA-Public Use
  Company Number: GB-PFIZER INC-2008042135

PATIENT
  Sex: Male

DRUGS (3)
  1. CELECOXIB [Suspect]
     Indication: PROSTATE CANCER
     Route: 048
  2. ZOLADEX [Suspect]
     Indication: PROSTATE CANCER
     Route: 058
  3. ZOLEDRONIC ACID [Suspect]
     Indication: PROSTATE CANCER
     Route: 042

REACTIONS (5)
  - ABDOMINAL DISCOMFORT [None]
  - CHANGE OF BOWEL HABIT [None]
  - NAUSEA [None]
  - PROSTATE CANCER METASTATIC [None]
  - VOMITING [None]
